FAERS Safety Report 9502706 (Version 3)
Quarter: 2013Q4

REPORT INFORMATION
  Report Type: Spontaneous
  Country: US (occurrence: None)
  Receive Date: 20130107
  Receipt Date: 20131226
  Transmission Date: 20140711
  Serious: Yes (Other)
  Sender: FDA-Public Use
  Company Number: PHEH2012US021139

PATIENT
  Age: 50 Year
  Sex: Female

DRUGS (1)
  1. GILENYA [Suspect]
     Indication: MULTIPLE SCLEROSIS
     Route: 048
     Dates: start: 20121024

REACTIONS (16)
  - Influenza like illness [None]
  - Paraesthesia [None]
  - Urinary tract infection [None]
  - Feeling abnormal [None]
  - Immune system disorder [None]
  - Liver disorder [None]
  - Nausea [None]
  - Hypoaesthesia [None]
  - Influenza [None]
  - Headache [None]
  - Inappropriate schedule of drug administration [None]
  - Pyrexia [None]
  - Chills [None]
  - Asthenia [None]
  - Vomiting [None]
  - Hepatic enzyme increased [None]
